FAERS Safety Report 6006284-0 (Version None)
Quarter: 2008Q4

REPORT INFORMATION
  Report Type: 
  Country: None (occurrence: None)
  Receive Date: 20081216
  Receipt Date: 20081216
  Transmission Date: 20090506
  Serious: Yes (Hospitalization)
  Sender: FDA-Public Use
  Company Number: None

PATIENT
  Age: 40 Year
  Sex: Male
  Weight: 55.7924 kg

DRUGS (2)
  1. COPAXONE [Suspect]
     Indication: MULTIPLE SCLEROSIS
     Dosage: I SHOT DAILY SQ
     Route: 058
     Dates: start: 20040105, end: 20080401
  2. GLATIRAMER ACETATE [Concomitant]

REACTIONS (11)
  - AMENORRHOEA [None]
  - ANXIETY [None]
  - DEPRESSION [None]
  - DISCOMFORT [None]
  - FATIGUE [None]
  - HEAD TITUBATION [None]
  - HYPERSENSITIVITY [None]
  - INJECTION SITE HAEMATOMA [None]
  - INJECTION SITE IRRITATION [None]
  - SKIN DISORDER [None]
  - SPEECH DISORDER [None]
